FAERS Safety Report 12577967 (Version 1)
Quarter: 2016Q3

REPORT INFORMATION
  Report Type: Spontaneous
  Country: US (occurrence: None)
  Receive Date: 20160720
  Receipt Date: 20160720
  Transmission Date: 20161109
  Serious: No
  Sender: FDA-Public Use
  Company Number: None

PATIENT
  Age: 89 Year
  Sex: Male
  Weight: 68.95 kg

DRUGS (2)
  1. GAVISON ANT ACID [Concomitant]
  2. TRIAMCINOLONE ACETONIDE CREAMUSP PERRIGO [Suspect]
     Active Substance: TRIAMCINOLONE ACETONIDE
     Indication: DERMATITIS
     Dosage: APPLIED TO A SURFACE, USUALLY THE SKIN
     Dates: start: 20160101

REACTIONS (1)
  - Headache [None]

NARRATIVE: CASE EVENT DATE: 20150401
